FAERS Safety Report 9477947 (Version 2)
Quarter: 2013Q3

REPORT INFORMATION
  Report Type: Spontaneous
  Country: US (occurrence: None)
  Receive Date: 20130822
  Receipt Date: 20130912
  Transmission Date: 20140515
  Serious: Yes (Hospitalization)
  Sender: FDA-Public Use
  Company Number: JPI-P-034433

PATIENT
  Age: 53 Year
  Sex: Male

DRUGS (1)
  1. XYREM [Suspect]
     Indication: NARCOLEPSY
     Dosage: 9GM (4.5GM, 2 IN 1D) ORAL
     Route: 048
     Dates: start: 20110412

REACTIONS (2)
  - Surgery [None]
  - Knee operation [None]
